FAERS Safety Report 4992687-X (Version None)
Quarter: 2006Q1

REPORT INFORMATION
  Report Type: 
  Country: None (occurrence: None)
  Receive Date: 20060313
  Receipt Date: 20051208
  Transmission Date: 20060701
  Serious: No
  Sender: FDA-Public Use
  Company Number: 2005-BP-19078BP

PATIENT
  Age: 57 Year
  Sex: Female

DRUGS (4)
  1. SPIRIVA [Suspect]
     Indication: CHRONIC OBSTRUCTIVE PULMONARY DISEASE
     Dosage: 18 MCG (18 MCG, 1 IN 1 D), IH
     Route: 055
     Dates: start: 20051001
  2. SPIRIVA [Suspect]
  3. EFFEXOR [Concomitant]
  4. AMBIEN [Concomitant]

REACTIONS (1)
  - DYSPNOEA [None]
